FAERS Safety Report 13211651 (Version 1)
Quarter: 2017Q1

REPORT INFORMATION
  Report Type: Spontaneous
  Country: US (occurrence: US)
  Receive Date: 20170209
  Receipt Date: 20170209
  Transmission Date: 20170428
  Serious: No
  Sender: FDA-Public Use
  Company Number: US-ALLERGAN-1655808US

PATIENT
  Age: 50 Year
  Sex: Female
  Weight: 52.15 kg

DRUGS (4)
  1. BOTOX [Suspect]
     Active Substance: ONABOTULINUMTOXINA
     Indication: MIGRAINE
     Dosage: 36 UNITS, SINGLE
     Route: 030
     Dates: start: 20160225, end: 20160225
  2. BOTOX [Suspect]
     Active Substance: ONABOTULINUMTOXINA
     Indication: MYOFASCIAL PAIN SYNDROME
     Dosage: 36 UNITS, SINGLE
     Route: 030
     Dates: start: 20160225, end: 20160225
  3. BOTOX [Suspect]
     Active Substance: ONABOTULINUMTOXINA
     Dosage: 14 UNITS, SINGLE
     Route: 030
     Dates: start: 20160225, end: 20160225
  4. BOTOX [Suspect]
     Active Substance: ONABOTULINUMTOXINA
     Dosage: 14 UNITS, SINGLE
     Route: 030
     Dates: start: 20160225, end: 20160225

REACTIONS (3)
  - Headache [Not Recovered/Not Resolved]
  - Off label use [Unknown]
  - Drug ineffective [Unknown]

NARRATIVE: CASE EVENT DATE: 20160225
